FAERS Safety Report 8343447-3 (Version None)
Quarter: 2012Q2

REPORT INFORMATION
  Report Type: 
  Country: None (occurrence: None)
  Receive Date: 20120508
  Receipt Date: 20120502
  Transmission Date: 20120825
  Serious: Yes (Hospitalization)
  Sender: FDA-Public Use
  Company Number: PHHY2012DE005621

PATIENT
  Age: 41 Year
  Sex: Male

DRUGS (2)
  1. ZOLEDRONOC ACID [Suspect]
     Indication: OSTEONECROSIS
     Dosage: 5 MG, UNK
     Route: 042
     Dates: start: 20110301
  2. CORTISONE ACETATE [Concomitant]

REACTIONS (1)
  - CROHN'S DISEASE [None]
